FAERS Safety Report 12452351 (Version 1)
Quarter: 2016Q2

REPORT INFORMATION
  Report Type: Spontaneous
  Country: US (occurrence: US)
  Receive Date: 20160609
  Receipt Date: 20160609
  Transmission Date: 20160815
  Serious: No
  Sender: FDA-Public Use
  Company Number: US-BAYER-2016-112980

PATIENT
  Age: 71 Year
  Sex: Female

DRUGS (1)
  1. ALEVE [Suspect]
     Active Substance: NAPROXEN SODIUM
     Dosage: 2 DF, TWO AROUND 7:30 LAST NIGHT AND TWO MORE THIS MORNING

REACTIONS (6)
  - Malaise [None]
  - Muscle spasms [None]
  - Diarrhoea [None]
  - Product use issue [None]
  - Product use issue [None]
  - Vomiting [None]

NARRATIVE: CASE EVENT DATE: 20160606
